FAERS Safety Report 23159322 (Version 4)
Quarter: 2024Q2

REPORT INFORMATION
  Report Type: Spontaneous
  Country: US (occurrence: US)
  Receive Date: 20231108
  Receipt Date: 20240426
  Transmission Date: 20240716
  Serious: No
  Sender: FDA-Public Use
  Company Number: US-PFIZER INC-PV202300175781

PATIENT
  Age: 6 Year
  Sex: Male
  Weight: 20.6 kg

DRUGS (3)
  1. GENOTROPIN [Suspect]
     Active Substance: SOMATROPIN
     Indication: Hypopituitarism
     Dosage: 0.8 MG, 6 DAYS PER WEEK
  2. GENOTROPIN [Suspect]
     Active Substance: SOMATROPIN
     Dosage: 1 MG, 6 DAYS PER WEEK
  3. GENOTROPIN [Suspect]
     Active Substance: SOMATROPIN
     Dosage: SIG: INJECT 0.7 MG (ALTERNATING 0.6/0.8) SQ 6X/WK, THIS EQUALS 0.21 MG/KG/WK
     Route: 058

REACTIONS (1)
  - Device delivery system issue [Unknown]
